FAERS Safety Report 9625734 (Version 1)
Quarter: 2013Q4

REPORT INFORMATION
  Report Type: Spontaneous
  Country: US (occurrence: US)
  Receive Date: 20131016
  Receipt Date: 20131016
  Transmission Date: 20140711
  Serious: Yes (Other)
  Sender: FDA-Public Use
  Company Number: US-RANBAXY-2013US-74180

PATIENT
  Age: 37 Year
  Sex: Male

DRUGS (3)
  1. ZOLPIDEM [Suspect]
     Indication: INSOMNIA
     Dosage: UNK
     Route: 065
  2. ALCOHOL [Interacting]
     Indication: PRODUCT USED FOR UNKNOWN INDICATION
     Route: 048
  3. BUPROPION [Concomitant]
     Indication: NICOTINE DEPENDENCE
     Dosage: UNK
     Route: 065

REACTIONS (2)
  - Intentional self-injury [Unknown]
  - Drug interaction [Unknown]
